FAERS Safety Report 9617640 (Version 1)
Quarter: 2013Q4

REPORT INFORMATION
  Report Type: Spontaneous
  Country: US (occurrence: US)
  Receive Date: 20131011
  Receipt Date: 20131011
  Transmission Date: 20140711
  Serious: Yes (Hospitalization, Other)
  Sender: FDA-Public Use
  Company Number: US-ACTAVIS-2013-17788

PATIENT
  Age: 58 Year
  Sex: Male
  Weight: 105 kg

DRUGS (2)
  1. CIPROFLOXACIN HYDROCHLORIDE (WATSON LABORATORIES) [Suspect]
     Indication: INFECTION
     Dosage: 500 MG, TID
     Route: 048
     Dates: start: 20110812, end: 20110812
  2. TIZANIDINE HYDROCHLORIDE (AELLC) [Suspect]
     Indication: MUSCLE RELAXANT THERAPY
     Dosage: 12 MG, DAILY
     Route: 048
     Dates: end: 20110812

REACTIONS (3)
  - Unresponsive to stimuli [Recovered/Resolved]
  - Cyanosis [Recovered/Resolved]
  - Renal failure acute [Recovered/Resolved]
